FAERS Safety Report 13325196 (Version 5)
Quarter: 2020Q1

REPORT INFORMATION
  Report Type: Report from Study
  Country: US (occurrence: US)
  Receive Date: 20170310
  Receipt Date: 20200221
  Transmission Date: 20200409
  Serious: Yes (Hospitalization, Other)
  Sender: FDA-Public Use
  Company Number: US-ACTELION-A-US2017-151000

PATIENT
  Age: 54 Year
  Sex: Female
  Weight: 131.52 kg

DRUGS (4)
  1. COUMADIN [Concomitant]
     Active Substance: WARFARIN SODIUM
  2. ADCIRCA [Concomitant]
     Active Substance: TADALAFIL
  3. AMLODIPINE [Concomitant]
     Active Substance: AMLODIPINE BESYLATE
  4. OPSUMIT [Suspect]
     Active Substance: MACITENTAN
     Indication: PULMONARY ARTERIAL HYPERTENSION
     Dosage: 10 MG, QD
     Route: 048

REACTIONS (10)
  - Syncope [Unknown]
  - Foot fracture [Unknown]
  - Immunodeficiency [Unknown]
  - Foot operation [Unknown]
  - Cystitis [Unknown]
  - Hypotension [Unknown]
  - Influenza [Unknown]
  - Transfusion [Unknown]
  - Infection [Unknown]
  - Haemoglobin decreased [Unknown]

NARRATIVE: CASE EVENT DATE: 20180821
